FAERS Safety Report 8650797 (Version 2)
Quarter: 2013Q1

REPORT INFORMATION
  Report Type: Spontaneous
  Country: US (occurrence: US)
  Receive Date: 20120705
  Receipt Date: 20130116
  Transmission Date: 20140127
  Serious: No
  Sender: FDA-Public Use
  Company Number: US-BAUSCH-2012BL003697

PATIENT
  Age: 70 Year
  Sex: Female

DRUGS (1)
  1. LATANOPROST OPHTHALMIC SOLUTION 0.005% [Suspect]
     Indication: GLAUCOMA
     Dosage: ONE DROP IN EACH EYE
     Route: 047
     Dates: start: 201205, end: 201205

REACTIONS (1)
  - Intraocular pressure increased [Recovered/Resolved]
